FAERS Safety Report 5947776-X (Version None)
Quarter: 2008Q4

REPORT INFORMATION
  Report Type: 
  Country: None (occurrence: None)
  Receive Date: 20081111
  Receipt Date: 20081106
  Transmission Date: 20090506
  Serious: Yes (Hospitalization)
  Sender: FDA-Public Use
  Company Number: FR-WYE-G02521208

PATIENT
  Sex: Female
  Weight: 15 kg

DRUGS (2)
  1. ADVIL [Suspect]
     Indication: PYREXIA
     Route: 048
     Dates: start: 20080927, end: 20081002
  2. ACETAMINOPHEN [Concomitant]
     Indication: PYREXIA
     Dosage: UNKNOWN
     Route: 048
     Dates: start: 20080925

REACTIONS (7)
  - CONDITION AGGRAVATED [None]
  - HEART RATE INCREASED [None]
  - LUNG DISORDER [None]
  - NEUTROPHIL COUNT INCREASED [None]
  - PLEURISY [None]
  - RHINITIS [None]
  - WHITE BLOOD CELL COUNT INCREASED [None]
